FAERS Safety Report 9300390 (Version 3)
Quarter: 2013Q3

REPORT INFORMATION
  Report Type: Report from Study
  Country: BE (occurrence: BE)
  Receive Date: 20130521
  Receipt Date: 20130809
  Transmission Date: 20140515
  Serious: Yes (Hospitalization)
  Sender: FDA-Public Use
  Company Number: BE-BAYER-2013-059993

PATIENT
  Sex: Male

DRUGS (2)
  1. NEXAVAR [Suspect]
     Indication: HEPATIC CANCER METASTATIC
     Dosage: 600 MG DAILY
  2. NEXAVAR [Suspect]
     Indication: HEPATIC CANCER METASTATIC
     Dosage: 800 MG DAILY
     Dates: start: 20121001

REACTIONS (7)
  - Hepatocellular carcinoma [None]
  - Malaise [None]
  - Drug ineffective [None]
  - Weight decreased [None]
  - Diarrhoea [None]
  - Decreased appetite [None]
  - Palmar-plantar erythrodysaesthesia syndrome [None]
